FAERS Safety Report 8997043 (Version 1)
Quarter: 2013Q1

REPORT INFORMATION
  Report Type: Spontaneous
  Country: US (occurrence: US)
  Receive Date: 20130104
  Receipt Date: 20130104
  Transmission Date: 20140127
  Serious: No
  Sender: FDA-Public Use
  Company Number: US-009507513-1301USA001558

PATIENT
  Age: 10 Year
  Sex: Female
  Weight: 31.75 kg

DRUGS (4)
  1. CLARITIN ORAL SOLUTION [Suspect]
     Indication: HYPERSENSITIVITY
     Dosage: UNK, QAM
     Route: 048
     Dates: start: 20121216
  2. CLARITIN ORAL SOLUTION [Suspect]
     Indication: SNEEZING
     Dosage: 7.5 MG, QPM
     Route: 048
     Dates: start: 20121215
  3. CLARITIN ORAL SOLUTION [Suspect]
     Indication: RHINORRHOEA
  4. NASONEX [Concomitant]
     Indication: PRODUCT USED FOR UNKNOWN INDICATION
     Dosage: UNK, PRN

REACTIONS (1)
  - Overdose [Unknown]
